FAERS Safety Report 7212088-3 (Version None)
Quarter: 2010Q4

REPORT INFORMATION
  Report Type: 
  Country: None (occurrence: None)
  Receive Date: 20101228
  Receipt Date: 20101214
  Transmission Date: 20110411
  Serious: Yes (Hospitalization)
  Sender: FDA-Public Use
  Company Number: 2010S1000401

PATIENT
  Age: 82 Year
  Sex: Female

DRUGS (2)
  1. DARVOCET-N 100 [Suspect]
     Indication: BACK PAIN
     Dosage: 300 MG; QD; PO
     Route: 048
  2. PAIN MEDICATION [Concomitant]

REACTIONS (3)
  - CARDIAC PACEMAKER INSERTION [None]
  - DEVICE MALFUNCTION [None]
  - SYNCOPE [None]
